FAERS Safety Report 4945884-3 (Version None)
Quarter: 2006Q1

REPORT INFORMATION
  Report Type: 
  Country: None (occurrence: None)
  Receive Date: 20060117
  Receipt Date: 20041216
  Transmission Date: 20060701
  Serious: Yes (Other)
  Sender: FDA-Public Use
  Company Number: A03200404308

PATIENT
  Age: 70 Year
  Sex: Female
  Weight: 62.1428 kg

DRUGS (9)
  1. PLAVIX [Suspect]
     Indication: CORONARY ARTERIAL STENT INSERTION
     Dosage: 75 MG QD - ORAL
     Route: 048
     Dates: start: 20041101, end: 20041216
  2. DOXAZOSIN [Concomitant]
  3. SIMVASTATIN [Concomitant]
  4. ALENDRONATE SODIUM [Concomitant]
  5. ATENOLOL [Concomitant]
  6. QUINAPRIL + HYDROCHLOROTHIAZIDE [Concomitant]
  7. ACETYLSALICYLIC ACID SRT [Concomitant]
  8. CALCIUM GLUCONATE [Concomitant]
  9. CALCIUM + VITAMIN D [Concomitant]

REACTIONS (5)
  - JOINT SWELLING [None]
  - OEDEMA PERIPHERAL [None]
  - PRURITUS [None]
  - SWELLING FACE [None]
  - URTICARIA [None]
